FAERS Safety Report 24333093 (Version 1)
Quarter: 2024Q3

REPORT INFORMATION
  Report Type: Spontaneous
  Country: AR (occurrence: AR)
  Receive Date: 20240918
  Receipt Date: 20240918
  Transmission Date: 20241017
  Serious: Yes (Other)
  Sender: PFIZER
  Company Number: AR-PFIZER INC-202400258180

PATIENT
  Age: 20 Year
  Sex: Male

DRUGS (1)
  1. IXIFI [Suspect]
     Active Substance: INFLIXIMAB-QBTX
     Indication: Colitis ulcerative
     Dosage: 400 MG, EVERY 4 WEEKS
     Dates: start: 20231006

REACTIONS (1)
  - Haematochezia [Unknown]
